FAERS Safety Report 19485940 (Version 3)
Quarter: 2021Q3

REPORT INFORMATION
  Report Type: Spontaneous
  Country: AT (occurrence: AT)
  Receive Date: 20210702
  Receipt Date: 20210828
  Transmission Date: 20211014
  Serious: Yes (Death, Other)
  Sender: FDA-Public Use
  Company Number: AT-REGENERON PHARMACEUTICALS, INC.-2021-64562

PATIENT

DRUGS (7)
  1. NOVALGIN (METAMIZOLE SODIUM) [Concomitant]
     Active Substance: METAMIZOLE SODIUM
     Indication: PAIN
     Dosage: 20 GTT DROPS, UPTO 3 TIMES A DAY
     Route: 048
     Dates: start: 20150501
  2. CEOLAT [Concomitant]
     Indication: NAUSEA
     Dosage: 5 ML, TID (UP TO 3 TIMES A DAY)
     Route: 048
     Dates: start: 20210424
  3. CANNABIDIOL [Concomitant]
     Active Substance: CANNABIDIOL
     Indication: WOUND COMPLICATION
     Dosage: 1?9 DROPS A DAY
     Route: 048
     Dates: start: 20210101
  4. GUTTALAX [Concomitant]
     Indication: CONSTIPATION
     Dosage: 5 GTT DROPS, QD
     Route: 048
     Dates: start: 20210424
  5. TOTHEMA [Concomitant]
     Active Substance: COPPER GLUCONATE\FERROUS GLUCONATE\MANGANESE GLUCONATE
     Indication: ANAEMIA
     Dosage: 1 VIAL=50M1/1?2 A DAY,
     Route: 048
     Dates: start: 20110101
  6. TRAMAL [Concomitant]
     Active Substance: TRAMADOL
     Indication: PAIN
     Dosage: 10 DROPS, UPTO 4 TIMES A DAY
     Route: 048
     Dates: start: 20210424
  7. LIBTAYO [Suspect]
     Active Substance: CEMIPLIMAB-RWLC
     Indication: SQUAMOUS CELL CARCINOMA
     Dosage: 150 MG (FLAT DOSE DUE TO LOW BODY WEIGHT)
     Route: 042

REACTIONS (2)
  - Malignant neoplasm progression [Fatal]
  - Septic necrosis [Fatal]

NARRATIVE: CASE EVENT DATE: 20210623
